FAERS Safety Report 8438007-X (Version None)
Quarter: 2012Q2

REPORT INFORMATION
  Report Type: 
  Country: None (occurrence: None)
  Receive Date: 20120614
  Receipt Date: 20120605
  Transmission Date: 20120825
  Serious: No
  Sender: FDA-Public Use
  Company Number: US-AMGEN-USASP2012031058

PATIENT
  Age: 80 Year
  Sex: Female
  Weight: 55.329 kg

DRUGS (17)
  1. ADVAIR DISKUS 100/50 [Concomitant]
  2. LABETALOL HCL [Concomitant]
     Dosage: 100 MG, UNK
  3. LOMOTIL [Concomitant]
  4. SPIRIVA [Concomitant]
     Dosage: 18 MUG, QD
  5. LOSARTAN POTASSIUM [Concomitant]
     Dosage: 100 MG, UNK
  6. BENZONATATE [Concomitant]
     Dosage: 100 MG, UNK
  7. POTASSIUM ACETATE [Concomitant]
  8. ALBUTEROL SULATE [Concomitant]
  9. MUCINEX [Concomitant]
     Dosage: 600 MG, PRN
  10. POTASSIUM CHLORIDE [Concomitant]
  11. PROLIA [Suspect]
     Indication: OSTEOPOROSIS
     Dosage: UNK
     Dates: start: 20120307
  12. FISH OIL [Concomitant]
  13. ASPIRIN [Concomitant]
     Dosage: 81 MG, QD
  14. LASIX [Concomitant]
     Dosage: 20 MG, UNK
  15. QUESTRAN [Concomitant]
     Dosage: 4 G, UNK
  16. B12                                /00056201/ [Concomitant]
     Dosage: 1000 MUG, UNK
     Route: 060
  17. BENEFIBER                          /00677201/ [Concomitant]

REACTIONS (9)
  - MUSCLE SPASMS [None]
  - BACK PAIN [None]
  - ANXIETY [None]
  - NERVOUSNESS [None]
  - DEPRESSION [None]
  - PAIN IN EXTREMITY [None]
  - MOBILITY DECREASED [None]
  - MYALGIA [None]
  - BLADDER DISORDER [None]
